FAERS Safety Report 18413421 (Version 1)
Quarter: 2020Q4

REPORT INFORMATION
  Report Type: Spontaneous
  Country: GB (occurrence: GB)
  Receive Date: 20201021
  Receipt Date: 20201021
  Transmission Date: 20210114
  Serious: Yes (Other)
  Sender: FDA-Public Use
  Company Number: GB-BAXTER-2020BAX020914

PATIENT
  Age: 29 Year
  Sex: Female
  Weight: 85 kg

DRUGS (2)
  1. PREDNISOLONE. [Concomitant]
     Active Substance: PREDNISOLONE
     Indication: PRODUCT USED FOR UNKNOWN INDICATION
     Dosage: IN A SINGLE DOSE
     Route: 065
     Dates: start: 20200922
  2. METRONIDAZOLE 500 MG / 100 ML INTRAVENOUS INFUSION [Suspect]
     Active Substance: METRONIDAZOLE
     Indication: PRODUCT USED FOR UNKNOWN INDICATION
     Route: 065
     Dates: start: 20200922

REACTIONS (4)
  - Angioedema [Unknown]
  - Peripheral swelling [Unknown]
  - Rash [Unknown]
  - Dysgeusia [Unknown]

NARRATIVE: CASE EVENT DATE: 20200922
